FAERS Safety Report 6537391-1 (Version None)
Quarter: 2010Q1

REPORT INFORMATION
  Report Type: 
  Country: None (occurrence: None)
  Receive Date: 20100114
  Receipt Date: 20100106
  Transmission Date: 20100710
  Serious: Yes (Other)
  Sender: FDA-Public Use
  Company Number: US-NOVOPROD-302983

PATIENT
  Sex: Female
  Weight: 76.6 kg

DRUGS (4)
  1. LANTUS [Suspect]
     Indication: TYPE 1 DIABETES MELLITUS
     Dosage: 24 IU, QD
     Route: 058
     Dates: start: 20091007
  2. LANTUS [Suspect]
     Dosage: 0 UNK, UNK
     Route: 058
     Dates: start: 20091214, end: 20091214
  3. NOVOLOG [Suspect]
     Indication: TYPE 1 DIABETES MELLITUS
     Dosage: 17 IU, QD
     Route: 058
     Dates: start: 20091007
  4. NOVOLOG [Suspect]
     Dosage: 32 IU, QD
     Route: 058
     Dates: start: 20091214, end: 20091214

REACTIONS (1)
  - THYROID NEOPLASM [None]
